FAERS Safety Report 6273935-5 (Version None)
Quarter: 2009Q3

REPORT INFORMATION
  Report Type: 
  Country: None (occurrence: None)
  Receive Date: 20090720
  Receipt Date: 20090707
  Transmission Date: 20100115
  Serious: Yes (Other)
  Sender: FDA-Public Use
  Company Number: TR-MERCK-0907USA01405

PATIENT
  Age: 4 Year
  Sex: Female

DRUGS (2)
  1. DECADRON [Suspect]
     Indication: ACUTE DISSEMINATED ENCEPHALOMYELITIS
     Route: 048
  2. GLOBULIN, IMMUNE [Concomitant]
     Route: 042

REACTIONS (1)
  - DRUG INEFFECTIVE [None]
